FAERS Safety Report 12799711 (Version 3)
Quarter: 2016Q4

REPORT INFORMATION
  Report Type: Report from Study
  Country: US (occurrence: US)
  Receive Date: 20160930
  Receipt Date: 20161021
  Transmission Date: 20170207
  Serious: Yes (Hospitalization)
  Sender: FDA-Public Use
  Company Number: US-PFIZER INC-2016442857

PATIENT
  Age: 61 Year
  Sex: Female
  Weight: 59 kg

DRUGS (3)
  1. PSYLLIUM HUSK /00029102/ [Concomitant]
     Active Substance: PLANTAGO OVATA SEED COAT
     Indication: CONSTIPATION
     Dosage: UNK UNK, DAILY
     Route: 048
     Dates: start: 2015
  2. CRIZOTINIB [Suspect]
     Active Substance: CRIZOTINIB
     Indication: BREAST CANCER METASTATIC
     Dosage: 250 MG, QD
     Route: 048
     Dates: start: 20160831, end: 20160914
  3. SUTENT [Suspect]
     Active Substance: SUNITINIB MALATE
     Indication: BREAST CANCER METASTATIC
     Dosage: 25 MG, QD
     Route: 048
     Dates: start: 20160831, end: 20160914

REACTIONS (2)
  - Ischaemic stroke [Recovered/Resolved]
  - Acute kidney injury [Recovered/Resolved]

NARRATIVE: CASE EVENT DATE: 20160919
